FAERS Safety Report 10220482 (Version 2)
Quarter: 2014Q2

REPORT INFORMATION
  Report Type: Not Available
  Country: FR (occurrence: FR)
  Receive Date: 20140606
  Receipt Date: 20140606
  Transmission Date: 20141212
  Serious: Yes (Hospitalization)
  Sender: FDA-Public Use
  Company Number: FR-BEH-2013037478

PATIENT
  Age: 75 Year
  Sex: Female

DRUGS (2)
  1. PRIVIGEN [Suspect]
     Dosage: INFUSION RATE: 60ML/MIN PROGRESSIVELY INCREASED
     Route: 042
  2. POLARAMINE [Concomitant]

REACTIONS (10)
  - Hypersensitivity [Unknown]
  - Hypotension [Recovered/Resolved]
  - Tachycardia [Recovered/Resolved]
  - Chills [Recovered/Resolved]
  - Rash macular [Recovered/Resolved]
  - Chills [Recovered/Resolved]
  - Cyanosis [Recovered/Resolved]
  - Abdominal pain [Recovered/Resolved]
  - Incorrect drug administration rate [Unknown]
  - Lung disorder [Recovered/Resolved]
